FAERS Safety Report 19138903 (Version 1)
Quarter: 2021Q2

REPORT INFORMATION
  Report Type: Spontaneous
  Country: US (occurrence: US)
  Receive Date: 20210414
  Receipt Date: 20210414
  Transmission Date: 20210717
  Serious: Yes (Life-Threatening)
  Sender: FDA-Public Use
  Company Number: None

PATIENT
  Age: 56 Year
  Sex: Female
  Weight: 66.15 kg

DRUGS (11)
  1. PFIZER?BIONTECH COVID?19 VACCINE [Suspect]
     Active Substance: TOZINAMERAN
     Indication: COVID-19 PROPHYLAXIS
  2. SIMBRINZA [Concomitant]
     Active Substance: BRIMONIDINE TARTRATE\BRINZOLAMIDE
  3. OTEZLA [Suspect]
     Active Substance: APREMILAST
     Indication: PSORIASIS
  4. METOPROLOL 50MG [Concomitant]
     Active Substance: METOPROLOL
  5. OTEZLA [Concomitant]
     Active Substance: APREMILAST
  6. LATANOPROST EYE DROPS [Concomitant]
     Active Substance: LATANOPROST
  7. SUSTANE DROPS [Concomitant]
  8. NORVASC [Concomitant]
     Active Substance: AMLODIPINE BESYLATE
  9. LIPITOR [Concomitant]
     Active Substance: ATORVASTATIN CALCIUM
  10. NEXIUM [Concomitant]
     Active Substance: ESOMEPRAZOLE MAGNESIUM
  11. ELIQUIS [Concomitant]
     Active Substance: APIXABAN

REACTIONS (6)
  - Pneumothorax [None]
  - Fatigue [None]
  - Abdominal pain [None]
  - Pulmonary embolism [None]
  - Gastrooesophageal reflux disease [None]
  - Asthenia [None]

NARRATIVE: CASE EVENT DATE: 20201230
